FAERS Safety Report 9053794 (Version 2)
Quarter: 2013Q1

REPORT INFORMATION
  Report Type: Spontaneous
  Country: US (occurrence: US)
  Receive Date: 20130207
  Receipt Date: 20130304
  Transmission Date: 20140127
  Serious: Yes (Other)
  Sender: FDA-Public Use
  Company Number: US-GLAXOSMITHKLINE-A1006227A

PATIENT
  Age: 57 Year
  Sex: Female
  Weight: 65.9 kg

DRUGS (6)
  1. ADVAIR [Suspect]
     Indication: ASTHMA
     Route: 055
     Dates: start: 2005
  2. LOSARTAN [Concomitant]
  3. SIMVASTATIN [Concomitant]
  4. CHLORTHALIDONE [Concomitant]
  5. ALBUTEROL [Concomitant]
  6. IMPRAMINE [Concomitant]

REACTIONS (4)
  - Asthma [Recovered/Resolved]
  - Dysphonia [Unknown]
  - Drug ineffective [Unknown]
  - Suspected counterfeit product [Unknown]
